FAERS Safety Report 17639431 (Version 4)
Quarter: 2020Q2

REPORT INFORMATION
  Report Type: Spontaneous
  Country: US (occurrence: US)
  Receive Date: 20200407
  Receipt Date: 20200615
  Transmission Date: 20200713
  Serious: Yes (Other)
  Sender: FDA-Public Use
  Company Number: US-PFIZER INC-2020140419

PATIENT
  Age: 64 Year
  Sex: Female

DRUGS (3)
  1. XELJANZ [Suspect]
     Active Substance: TOFACITINIB CITRATE
     Indication: RHEUMATOID ARTHRITIS
     Dosage: 5 MG, 2X/DAY
     Route: 048
     Dates: start: 2019
  2. XELJANZ [Suspect]
     Active Substance: TOFACITINIB CITRATE
     Dosage: 5 MG, 2X/DAY
     Route: 048
     Dates: start: 2020
  3. CELEBREX [Concomitant]
     Active Substance: CELECOXIB
     Dosage: UNK

REACTIONS (19)
  - Dyspnoea [Unknown]
  - Irritability [Unknown]
  - Haematoma [Unknown]
  - Blood pressure increased [Unknown]
  - Chronic obstructive pulmonary disease [Unknown]
  - Pain [Unknown]
  - Muscle spasms [Unknown]
  - Haemorrhage [Unknown]
  - Fatigue [Unknown]
  - Peripheral swelling [Unknown]
  - Speech disorder [Unknown]
  - Arthralgia [Unknown]
  - Skin haemorrhage [Unknown]
  - Depression [Unknown]
  - Hypercapnia [Unknown]
  - Asthma [Unknown]
  - Drug ineffective [Unknown]
  - Fibromyalgia [Unknown]
  - Skin laceration [Unknown]

NARRATIVE: CASE EVENT DATE: 2020
